FAERS Safety Report 17529963 (Version 1)
Quarter: 2020Q1

REPORT INFORMATION
  Report Type: Spontaneous
  Country: NL (occurrence: FR)
  Receive Date: 20200311
  Receipt Date: 20200311
  Transmission Date: 20200409
  Serious: Yes (Hospitalization)
  Sender: FDA-Public Use
  Company Number: FR-FRESENIUS KABI-FK202002402

PATIENT
  Age: 56 Year
  Sex: Male
  Weight: 121 kg

DRUGS (3)
  1. SUXAMETHONIUM IODIDE [Suspect]
     Active Substance: SUCCINYLCHOLINE IODIDE
     Indication: ENDOSCOPIC ULTRASOUND
     Route: 040
     Dates: start: 20190904, end: 20190904
  2. PROPOFOL (MANUFACTURER UNKNOWN) [Suspect]
     Active Substance: PROPOFOL
     Indication: ENDOSCOPIC ULTRASOUND
     Route: 040
     Dates: start: 20190904, end: 20190904
  3. SUFENTANIL [Suspect]
     Active Substance: SUFENTANIL
     Indication: ENDOSCOPIC ULTRASOUND
     Route: 040
     Dates: start: 20190904, end: 20190904

REACTIONS (4)
  - Anaphylactic shock [Recovered/Resolved]
  - Tachycardia [Recovered/Resolved]
  - Circulatory collapse [Recovered/Resolved]
  - Bronchospasm [Recovered/Resolved]

NARRATIVE: CASE EVENT DATE: 20190904
